FAERS Safety Report 10238565 (Version 1)
Quarter: 2014Q2

REPORT INFORMATION
  Report Type: Spontaneous
  Country: FI (occurrence: FI)
  Receive Date: 20140616
  Receipt Date: 20140616
  Transmission Date: 20141212
  Serious: Yes (Other)
  Sender: FDA-Public Use
  Company Number: FI-PFIZER INC-2014158079

PATIENT
  Age: 31 Year
  Sex: Female

DRUGS (3)
  1. LYRICA [Suspect]
     Indication: ANXIETY DISORDER
     Dosage: 300 MG, 2X/DAY
     Dates: end: 2014
  2. LYRICA [Suspect]
     Indication: POST-TRAUMATIC STRESS DISORDER
  3. DIAZEPAM [Concomitant]
     Indication: ANXIETY
     Dosage: 30 MG, AS NEEDED

REACTIONS (28)
  - Drug dependence [Unknown]
  - Suicidal ideation [Unknown]
  - Depressed level of consciousness [Unknown]
  - Mental impairment [Unknown]
  - Depression [Unknown]
  - Panic attack [Unknown]
  - Social avoidant behaviour [Unknown]
  - Palpitations [Unknown]
  - Dizziness [Unknown]
  - Nausea [Unknown]
  - Hyperhidrosis [Unknown]
  - Chest discomfort [Unknown]
  - Dysphagia [Unknown]
  - Tinnitus [Unknown]
  - Suffocation feeling [Unknown]
  - Tension [Unknown]
  - Sensory loss [Unknown]
  - Headache [Unknown]
  - Emotional disorder [Unknown]
  - Restlessness [Unknown]
  - Anxiety [Unknown]
  - Memory impairment [Unknown]
  - Sleep disorder [Unknown]
  - Derealisation [Unknown]
  - Fear of death [Unknown]
  - Increased appetite [Unknown]
  - Weight increased [Unknown]
  - Oedema [Unknown]
